FAERS Safety Report 6853478-8 (Version None)
Quarter: 2010Q3

REPORT INFORMATION
  Report Type: 
  Country: None (occurrence: None)
  Receive Date: 20100717
  Receipt Date: 20071206
  Transmission Date: 20110219
  Serious: No
  Sender: FDA-Public Use
  Company Number: US-PFIZER INC-2007103991

PATIENT
  Sex: Male
  Weight: 75 kg

DRUGS (11)
  1. CHANTIX [Suspect]
     Indication: SMOKING CESSATION THERAPY
     Route: 048
     Dates: start: 20071101
  2. OMEPRAZOLE [Concomitant]
     Indication: GASTROOESOPHAGEAL REFLUX DISEASE
  3. LISINOPRIL [Concomitant]
     Indication: CARDIAC DISORDER
  4. LISINOPRIL [Concomitant]
     Indication: BLOOD PRESSURE ABNORMAL
  5. DIGOXIN [Concomitant]
     Indication: CARDIAC DISORDER
  6. DIGOXIN [Concomitant]
     Indication: BLOOD PRESSURE ABNORMAL
  7. DILTIAZEM [Concomitant]
     Indication: CARDIAC DISORDER
  8. DILTIAZEM [Concomitant]
     Indication: BLOOD PRESSURE ABNORMAL
  9. DICLOFENAC [Concomitant]
     Indication: BACK PAIN
  10. ATENOLOL [Concomitant]
  11. GABAPENTIN [Concomitant]

REACTIONS (1)
  - VOMITING [None]
